FAERS Safety Report 5504439-2 (Version None)
Quarter: 2007Q4

REPORT INFORMATION
  Report Type: 
  Country: None (occurrence: None)
  Receive Date: 20071101
  Receipt Date: 20071022
  Transmission Date: 20080405
  Serious: Yes (Hospitalization)
  Sender: FDA-Public Use
  Company Number: FR-PFIZER INC-2007089374

PATIENT
  Age: 70 Year
  Sex: Female

DRUGS (3)
  1. LYRICA [Suspect]
     Indication: NEURALGIA
  2. RIVOTRIL [Concomitant]
  3. TAHOR [Concomitant]

REACTIONS (2)
  - HEPATITIS [None]
  - TRANSAMINASES INCREASED [None]
